FAERS Safety Report 15228618 (Version 2)
Quarter: 2018Q3

REPORT INFORMATION
  Report Type: Spontaneous
  Country: US (occurrence: US)
  Receive Date: 20180801
  Receipt Date: 20180827
  Transmission Date: 20181010
  Serious: Yes (Hospitalization, Other)
  Sender: FDA-Public Use
  Company Number: US-PFIZER INC-2018304645

PATIENT
  Age: 73 Year
  Sex: Female

DRUGS (2)
  1. DIURIL [Concomitant]
     Active Substance: CHLOROTHIAZIDE
     Indication: DIURETIC THERAPY
     Dosage: UNK
  2. SERTRALINE HCL [Suspect]
     Active Substance: SERTRALINE HYDROCHLORIDE
     Indication: DEPRESSION
     Dosage: UNK
     Dates: start: 1970

REACTIONS (20)
  - Meningitis [Unknown]
  - Angina pectoris [Unknown]
  - Photophobia [Unknown]
  - Confusional state [Unknown]
  - Syncope [Unknown]
  - Panic attack [Unknown]
  - Migraine [Unknown]
  - Nervousness [Unknown]
  - Hyperacusis [Unknown]
  - Dysphagia [Unknown]
  - Autoscopy [Unknown]
  - Cardiac disorder [Unknown]
  - Allergic reaction to excipient [Unknown]
  - Irritability [Unknown]
  - Photopsia [Unknown]
  - Impaired driving ability [Unknown]
  - Choking [Unknown]
  - Dyspnoea [Unknown]
  - Infectious mononucleosis [Unknown]
  - Drug interaction [Unknown]
